FAERS Safety Report 14355236 (Version 1)
Quarter: 2018Q1

REPORT INFORMATION
  Report Type: Spontaneous
  Country: FR (occurrence: FR)
  Receive Date: 20180105
  Receipt Date: 20180105
  Transmission Date: 20180509
  Serious: Yes (Hospitalization)
  Sender: FDA-Public Use
  Company Number: FR-PFIZER INC-2017556022

PATIENT
  Age: 12 Year
  Sex: Male
  Weight: 28 kg

DRUGS (3)
  1. SETOFILM [Suspect]
     Active Substance: ONDANSETRON
     Indication: NAUSEA
     Dosage: 8 MG, UNK
     Route: 048
     Dates: start: 20171103, end: 20171114
  2. ZYVOXID [Suspect]
     Active Substance: LINEZOLID
     Indication: LUNG DISORDER
     Dosage: 300 MG, UNK
     Route: 048
     Dates: start: 20171101
  3. TETMODIS [Suspect]
     Active Substance: TETRABENAZINE
     Indication: HYPERKINESIA
     Dosage: 37.5 MG, UNK
     Route: 048
     Dates: start: 20171018, end: 20171123

REACTIONS (5)
  - Pyrexia [Recovered/Resolved]
  - Agitation [Recovered/Resolved]
  - Hyperhidrosis [Recovered/Resolved]
  - Tremor [Not Recovered/Not Resolved]
  - Diarrhoea [Recovered/Resolved]

NARRATIVE: CASE EVENT DATE: 20171103
